FAERS Safety Report 20363422 (Version 2)
Quarter: 2022Q1

REPORT INFORMATION
  Report Type: Spontaneous
  Country: AT (occurrence: AT)
  Receive Date: 20220121
  Receipt Date: 20220216
  Transmission Date: 20220423
  Serious: Yes (Death, Other)
  Sender: FDA-Public Use
  Company Number: AT-DSJP-DSE-2022-101964

PATIENT
  Age: 43 Year
  Sex: Male

DRUGS (2)
  1. ENHERTU [Suspect]
     Active Substance: FAM-TRASTUZUMAB DERUXTECAN-NXKI
     Indication: HER2 positive gastric cancer
     Dosage: UNK UNK, CYCLIC, 1ST CYCLE
     Dates: start: 202110
  2. ENHERTU [Suspect]
     Active Substance: FAM-TRASTUZUMAB DERUXTECAN-NXKI
     Dosage: UNK UNK, CYCLIC, 2ND CYCLE

REACTIONS (4)
  - Death [Fatal]
  - Neutropenia [Unknown]
  - Decreased appetite [Unknown]
  - Off label use [Unknown]
